FAERS Safety Report 8796251 (Version 1)
Quarter: 2012Q4

REPORT INFORMATION
  Report Type: 
  Country: US (occurrence: US)
  Receive Date: 20120919
  Receipt Date: 20120919
  Transmission Date: 20130627
  Serious: No
  Sender: FDA-Public Use
  Company Number: US-BAUSCH-BL-2012-000039

PATIENT
  Age: 70 Year
  Sex: Female

DRUGS (3)
  1. NEOMYCIN AND POLYMYXIN B SULFATES AND DEXAMETHASONE OPHTHALMIC OINTMEN [Suspect]
     Dosage: 1 Dosage forms; Twice a day; Ophthalmic
     Route: 047
     Dates: start: 20120712, end: 20120712
  2. NEOMYCIN AND POLYMYXIN B SULFATES AND DEXAMETHASONE OPHTHALMIC SUSPENS [Suspect]
     Indication: POSTOPERATIVE CARE
     Dosage: 1 Drop; Once; Ophthalmic
     Route: 047
     Dates: start: 20120712, end: 20120712
  3. ATROPINE SULFATE [Suspect]
     Indication: POSTOPERATIVE CARE
     Dosage: 1 Drop; Twice a day; Ophthalmic
     Route: 047
     Dates: start: 20120711

REACTIONS (1)
  - Ocular hyperaemia [Not Recovered/Not Resolved]
